FAERS Safety Report 9326748 (Version 2)
Quarter: 2013Q2

REPORT INFORMATION
  Report Type: Spontaneous
  Country: JP (occurrence: None)
  Receive Date: 20130530
  Receipt Date: 20130612
  Transmission Date: 20140414
  Serious: Yes (Death)
  Sender: FDA-Public Use
  Company Number: ADR-2013-00892

PATIENT
  Age: 54 Year
  Sex: Male

DRUGS (1)
  1. GABALON INTRATHECAL [Suspect]

REACTIONS (2)
  - Cardiac arrest [None]
  - Delirium tremens [None]
